FAERS Safety Report 17403929 (Version 1)
Quarter: 2020Q1

REPORT INFORMATION
  Report Type: Report from Study
  Country: US (occurrence: US)
  Receive Date: 20200211
  Receipt Date: 20200211
  Transmission Date: 20200409
  Serious: Yes (Other)
  Sender: FDA-Public Use
  Company Number: US-TEVA-2020-US-1182768

PATIENT
  Age: 56 Year
  Sex: Female

DRUGS (3)
  1. VENETOCLAX. [Interacting]
     Active Substance: VENETOCLAX
     Indication: ACUTE MYELOID LEUKAEMIA
     Route: 065
  2. POSACONAZOLE [Interacting]
     Active Substance: POSACONAZOLE
     Indication: ANTIFUNGAL PROPHYLAXIS
     Route: 065
  3. 5-AZACITIDINE [Suspect]
     Active Substance: AZACITIDINE
     Indication: ACUTE MYELOID LEUKAEMIA
     Dosage: 7-DAY COURSE
     Route: 065

REACTIONS (4)
  - Neutropenia [Unknown]
  - Drug interaction [Unknown]
  - Bronchopulmonary aspergillosis [Unknown]
  - Bone marrow failure [Unknown]
